FAERS Safety Report 20895490 (Version 1)
Quarter: 2022Q2

REPORT INFORMATION
  Report Type: Spontaneous
  Country: AU (occurrence: AU)
  Receive Date: 20220531
  Receipt Date: 20220531
  Transmission Date: 20220720
  Serious: Yes (Hospitalization)
  Sender: FDA-Public Use
  Company Number: AU-MYLANLABS-2022M1040954

PATIENT
  Age: 26 Year
  Sex: Female

DRUGS (13)
  1. TOBRAMYCIN [Suspect]
     Active Substance: TOBRAMYCIN
     Indication: Keratitis bacterial
     Dosage: UNK, EYE DROPS; ALTERNATING HALF HOURLY
     Route: 047
  2. TOBRAMYCIN [Suspect]
     Active Substance: TOBRAMYCIN
     Indication: Eye complication associated with device
  3. CHLORAMPHENICOL [Suspect]
     Active Substance: CHLORAMPHENICOL
     Indication: Keratitis bacterial
     Dosage: UNK, EYE DROPS; ALTERNATING HALF HOURLY
     Route: 047
  4. CHLORAMPHENICOL [Suspect]
     Active Substance: CHLORAMPHENICOL
     Indication: Eye complication associated with device
  5. OFLOXACIN [Suspect]
     Active Substance: OFLOXACIN
     Indication: Keratitis bacterial
     Dosage: UNK, EYE DROPS; ALTERNATING HALF HOURLY
     Route: 047
  6. GENTAMICIN [Suspect]
     Active Substance: GENTAMICIN
     Indication: Keratitis bacterial
     Dosage: UNK, EYE DROPS; ALTERNATING HALF HOURLY
     Route: 047
  7. GENTAMICIN [Concomitant]
     Active Substance: GENTAMICIN
     Indication: Keratitis bacterial
     Dosage: 160 MILLIGRAM, IN 1 L SODIUM CHLORIDE AT A RATE OF 1 DROP EVERY 5 SECONDS AS A PART OF SUBPALPEBRAL
     Route: 042
  8. CLINDAMYCIN [Concomitant]
     Active Substance: CLINDAMYCIN
     Indication: Keratitis bacterial
     Dosage: 600 MILLIGRAM, IN 1 L SODIUM CHLORIDE AT A RATE OF 1 DROP EVERY 5 SECONDS AS A PART OF SUBPALPEBRAL
     Route: 042
  9. CLINDAMYCIN [Concomitant]
     Active Substance: CLINDAMYCIN
     Dosage: UNK (RESTARTED)
     Route: 042
  10. SODIUM CHLORIDE [Concomitant]
     Active Substance: SODIUM CHLORIDE
     Indication: Keratitis bacterial
     Dosage: 1 LITER, AT A RATE OF 1 DROP EVERY 5 SECONDS AS A PART OF SUBPALPEBRAL ANTIBIOTIC LAVAGE TECHNIQUE
     Route: 042
  11. XYLOCAINE [Concomitant]
     Active Substance: LIDOCAINE HYDROCHLORIDE
     Indication: Induction of anaesthesia
     Dosage: UNK
     Route: 065
  12. EPINEPHRINE [Concomitant]
     Active Substance: EPINEPHRINE
     Indication: Drug therapy
     Dosage: UNK, 1/80000
     Route: 065
  13. BENOXINATE [Concomitant]
     Active Substance: BENOXINATE
     Indication: Induction of anaesthesia
     Dosage: UNK,  TRANSCONJUNCTIVAL, ANAESTHETIED OCULAR SURFACE USING OXYBUPROCAINE EYE ??..

REACTIONS (1)
  - Treatment failure [Unknown]
